FAERS Safety Report 15070150 (Version 1)
Quarter: 2018Q2

REPORT INFORMATION
  Report Type: Spontaneous
  Country: GB (occurrence: GB)
  Receive Date: 20180626
  Receipt Date: 20180626
  Transmission Date: 20180711
  Serious: Yes (Death)
  Sender: FDA-Public Use
  Company Number: GB-PFIZER INC-2018257718

PATIENT
  Age: 88 Year
  Sex: Female
  Weight: 50 kg

DRUGS (3)
  1. MIDAZOLAM [Suspect]
     Active Substance: MIDAZOLAM HYDROCHLORIDE
     Dosage: 40 MG, UNK
  2. DIAMORPHINE [Suspect]
     Active Substance: DIAMORPHINE
     Dosage: 40 MG, UNK
  3. CHLORPROMAZINE. [Suspect]
     Active Substance: CHLORPROMAZINE
     Dosage: 50 MG, UNK

REACTIONS (1)
  - Death [Fatal]
